FAERS Safety Report 7735349-8 (Version None)
Quarter: 2011Q3

REPORT INFORMATION
  Report Type: 
  Country: None (occurrence: None)
  Receive Date: 20110907
  Receipt Date: 20110829
  Transmission Date: 20111222
  Serious: Yes (Other)
  Sender: FDA-Public Use
  Company Number: BR-ASTRAZENECA-2011SE52063

PATIENT
  Age: 59 Year
  Sex: Male

DRUGS (4)
  1. ATACAND HCT [Suspect]
     Indication: HYPERTENSION
     Dosage: 16/12.5 MGS OD
     Route: 048
     Dates: start: 20110401, end: 20110701
  2. ADALAT [Concomitant]
     Indication: HYPERTENSION
     Route: 048
     Dates: start: 20110401
  3. ATACAND HCT [Suspect]
     Indication: HYPERTENSION
     Dosage: 16/5 MGS BID
     Route: 048
     Dates: start: 20110701, end: 20110727
  4. OLCADIL [Suspect]
     Route: 048
     Dates: start: 20110701

REACTIONS (5)
  - DRUG INEFFECTIVE [None]
  - BLOOD PRESSURE INCREASED [None]
  - SOMNOLENCE [None]
  - DRUG DISPENSING ERROR [None]
  - INAPPROPRIATE SCHEDULE OF DRUG ADMINISTRATION [None]
